FAERS Safety Report 19905103 (Version 1)
Quarter: 2021Q3

REPORT INFORMATION
  Report Type: Report from Study
  Country: US (occurrence: US)
  Receive Date: 20210930
  Receipt Date: 20210930
  Transmission Date: 20211014
  Serious: Yes (Hospitalization)
  Sender: FDA-Public Use
  Company Number: US-SHIRE-US202016821

PATIENT
  Sex: Male

DRUGS (8)
  1. TEDUGLUTIDE [Suspect]
     Active Substance: TEDUGLUTIDE
     Indication: SHORT-BOWEL SYNDROME
     Dosage: 3.585 MILLIGRAM, QD
     Route: 058
     Dates: start: 20191224
  2. TEDUGLUTIDE [Suspect]
     Active Substance: TEDUGLUTIDE
     Dosage: 3.585 MILLIGRAM, QD
     Route: 058
     Dates: start: 20191227
  3. TEDUGLUTIDE [Suspect]
     Active Substance: TEDUGLUTIDE
     Dosage: 3.585 MILLIGRAM, QD
     Route: 058
     Dates: start: 20191227
  4. TEDUGLUTIDE [Suspect]
     Active Substance: TEDUGLUTIDE
     Indication: SHORT-BOWEL SYNDROME
     Dosage: 3.585 MILLIGRAM, QD
     Route: 058
     Dates: start: 20191224
  5. TEDUGLUTIDE [Suspect]
     Active Substance: TEDUGLUTIDE
     Indication: SHORT-BOWEL SYNDROME
     Dosage: 3.585 MILLIGRAM, QD
     Route: 058
     Dates: start: 20191224
  6. TEDUGLUTIDE [Suspect]
     Active Substance: TEDUGLUTIDE
     Dosage: 3.585 MILLIGRAM, QD
     Route: 058
     Dates: start: 20191227
  7. TEDUGLUTIDE [Suspect]
     Active Substance: TEDUGLUTIDE
     Dosage: 3.585 MILLIGRAM, QD
     Route: 058
     Dates: start: 20191227
  8. TEDUGLUTIDE [Suspect]
     Active Substance: TEDUGLUTIDE
     Indication: SHORT-BOWEL SYNDROME
     Dosage: 3.585 MILLIGRAM, QD
     Route: 058
     Dates: start: 20191224

REACTIONS (3)
  - Aphasia [Unknown]
  - Hospitalisation [Unknown]
  - Drug ineffective [Unknown]
